FAERS Safety Report 9535957 (Version 1)
Quarter: 2013Q3

REPORT INFORMATION
  Report Type: Spontaneous
  Country: US (occurrence: None)
  Receive Date: 20130917
  Receipt Date: 20130917
  Transmission Date: 20140515
  Serious: Yes (Hospitalization)
  Sender: FDA-Public Use
  Company Number: None

PATIENT
  Age: 52 Year
  Sex: Male
  Weight: 92.99 kg

DRUGS (3)
  1. TOPIRAMATE [Suspect]
     Indication: MIGRAINE
     Route: 048
     Dates: start: 20120601, end: 20130916
  2. TOPIRAMATE [Suspect]
     Indication: MOOD SWINGS
     Route: 048
     Dates: start: 20120601, end: 20130916
  3. TOPIRAMATE [Suspect]
     Indication: BIPOLAR DISORDER
     Route: 048
     Dates: start: 20120601, end: 20130916

REACTIONS (8)
  - Chest pain [None]
  - Confusional state [None]
  - Muscle atrophy [None]
  - Weight decreased [None]
  - Amnesia [None]
  - Thinking abnormal [None]
  - Myalgia [None]
  - Tremor [None]
